FAERS Safety Report 5834627-7 (Version None)
Quarter: 2008Q3

REPORT INFORMATION
  Report Type: 
  Country: None (occurrence: None)
  Receive Date: 20080801
  Receipt Date: 20080725
  Transmission Date: 20090109
  Serious: Yes (Disabling, Other)
  Sender: FDA-Public Use
  Company Number: 2008SP015356

PATIENT
  Age: 49 Year
  Sex: Male

DRUGS (1)
  1. INTERFERON [Suspect]
     Indication: HEPATITIS C

REACTIONS (16)
  - ABDOMINAL PAIN UPPER [None]
  - ASTHENIA [None]
  - BIPOLAR DISORDER [None]
  - CONSTIPATION [None]
  - DIARRHOEA [None]
  - DYSGEUSIA [None]
  - FATIGUE [None]
  - HEPATIC CIRRHOSIS [None]
  - HEPATIC ENZYME INCREASED [None]
  - HEPATOSPLENOMEGALY [None]
  - LIBIDO DECREASED [None]
  - STOMACH DISCOMFORT [None]
  - SWOLLEN TONGUE [None]
  - THIRST [None]
  - TONGUE DISORDER [None]
  - WEIGHT DECREASED [None]
